FAERS Safety Report 4451863-5 (Version None)
Quarter: 2004Q3

REPORT INFORMATION
  Report Type: 
  Country: None (occurrence: None)
  Receive Date: 20040915
  Receipt Date: 20040915
  Transmission Date: 20050211
  Serious: Yes (Other)
  Sender: FDA-Public Use
  Company Number: None

PATIENT
  Sex: Male
  Weight: 62.5964 kg

DRUGS (3)
  1. CISPLATIN [Suspect]
     Indication: SMALL CELL LUNG CANCER STAGE UNSPECIFIED
     Dosage: 141.6MG IV
     Route: 042
     Dates: start: 20040414
  2. ETOPOSIDE [Suspect]
     Indication: SMALL CELL LUNG CANCER STAGE UNSPECIFIED
     Dosage: 150 MG IV
     Route: 042
     Dates: start: 20040414, end: 20040416
  3. MANNITOL [Concomitant]

REACTIONS (2)
  - BLOOD URIC ACID INCREASED [None]
  - DRUG TOXICITY [None]
